FAERS Safety Report 16062103 (Version 1)
Quarter: 2019Q1

REPORT INFORMATION
  Report Type: Spontaneous
  Country: ES (occurrence: ES)
  Receive Date: 20190312
  Receipt Date: 20190312
  Transmission Date: 20190418
  Serious: Yes (Other)
  Sender: FDA-Public Use
  Company Number: ES-B.I. PHARMACEUTICALS,INC./RIDGEFIELD-2019-12-000804

PATIENT
  Age: 59 Year
  Sex: Male
  Weight: 121 kg

DRUGS (5)
  1. METFORMIN [Concomitant]
     Active Substance: METFORMIN HYDROCHLORIDE
     Indication: TYPE 2 DIABETES MELLITUS
     Dosage: STRENGTH: 50 MG/1000 MG, COMPRIMIDOS RECUBIERTOS CON PELICULA, 60 COMPRIMIDOS
     Route: 065
     Dates: start: 20150318
  2. ZOLPIDEM [Concomitant]
     Active Substance: ZOLPIDEM\ZOLPIDEM TARTRATE
     Indication: INSOMNIA
     Route: 065
     Dates: start: 20160114
  3. LORAZEPAM. [Concomitant]
     Active Substance: LORAZEPAM
     Indication: ANXIETY
     Route: 065
     Dates: start: 20150324
  4. CAPENON [Concomitant]
     Active Substance: AMLODIPINE BESYLATE\OLMESARTAN MEDOXOMIL
     Indication: HYPERTENSION
     Dosage: STRENGTH: 40/ 5 MILLIGRAM, COMPRIMIDOS RECUBIERTOS CON PELICULA , 28 COMPRIMIDOS
     Route: 065
     Dates: start: 20140610
  5. JARDIANCE [Suspect]
     Active Substance: EMPAGLIFLOZIN
     Indication: TYPE 2 DIABETES MELLITUS
     Dosage: COMPRIMIDOS RECUBIERTOS CON PELICULA 30 COMPRIMIDOS
     Route: 048
     Dates: start: 20180306, end: 20190109

REACTIONS (2)
  - Pyelonephritis [Unknown]
  - Pyelitis [Unknown]

NARRATIVE: CASE EVENT DATE: 20181210
